FAERS Safety Report 5960339-5 (Version None)
Quarter: 2008Q4

REPORT INFORMATION
  Report Type: 
  Country: None (occurrence: None)
  Receive Date: 20081118
  Receipt Date: 20081112
  Transmission Date: 20090506
  Serious: Yes (Other)
  Sender: FDA-Public Use
  Company Number: TOR 2008-0050

PATIENT
  Age: 65 Year
  Sex: Female

DRUGS (1)
  1. FARESTON [Suspect]
     Indication: BREAST CANCER STAGE IV
     Dosage: 120 MG ORAL
     Route: 048
     Dates: start: 20081016, end: 20081106

REACTIONS (1)
  - HEPATIC FUNCTION ABNORMAL [None]
